FAERS Safety Report 7214944-9 (Version None)
Quarter: 2011Q1

REPORT INFORMATION
  Report Type: 
  Country: None (occurrence: None)
  Receive Date: 20110107
  Receipt Date: 20100824
  Transmission Date: 20110831
  Serious: No
  Sender: FDA-Public Use
  Company Number: A0862239A

PATIENT
  Age: 66 Year
  Sex: Male

DRUGS (3)
  1. LOVAZA [Suspect]
     Dosage: 4CAP PER DAY
     Route: 048
     Dates: start: 20100525
  2. WARFARIN [Concomitant]
  3. METOPROLOL [Concomitant]

REACTIONS (6)
  - ERYTHEMA [None]
  - SKIN TIGHTNESS [None]
  - OEDEMA PERIPHERAL [None]
  - RASH [None]
  - ABDOMINAL DISCOMFORT [None]
  - MYALGIA [None]
